FAERS Safety Report 5838601-6 (Version None)
Quarter: 2008Q3

REPORT INFORMATION
  Report Type: 
  Country: None (occurrence: None)
  Receive Date: 20080808
  Receipt Date: 20080521
  Transmission Date: 20090109
  Serious: No
  Sender: FDA-Public Use
  Company Number: A0729053A

PATIENT
  Age: 54 Year
  Sex: Female

DRUGS (6)
  1. ALTABAX [Suspect]
     Indication: CELLULITIS
     Dosage: 10MG TWICE PER DAY
     Route: 061
     Dates: start: 20080501, end: 20080501
  2. ACE INHIBITOR [Concomitant]
  3. BLOOD PRESSURE MEDICATION [Concomitant]
  4. VYTORIN [Concomitant]
  5. PLAVIX [Concomitant]
  6. ANTIBIOTIC [Concomitant]

REACTIONS (2)
  - ERYTHEMA [None]
  - PRURITUS [None]
